FAERS Safety Report 25705204 (Version 1)
Quarter: 2025Q3

REPORT INFORMATION
  Report Type: Report from Study
  Country: CN (occurrence: CN)
  Receive Date: 20250820
  Receipt Date: 20250820
  Transmission Date: 20251021
  Serious: Yes (Other)
  Sender: ROCHE
  Company Number: CN-ROCHE-3499892

PATIENT
  Age: 63 Year
  Sex: Female

DRUGS (68)
  1. POLATUZUMAB VEDOTIN [Suspect]
     Active Substance: POLATUZUMAB VEDOTIN
     Indication: Diffuse large B-cell lymphoma
     Route: 042
     Dates: end: 20231126
  2. POLATUZUMAB VEDOTIN [Suspect]
     Active Substance: POLATUZUMAB VEDOTIN
     Route: 042
     Dates: start: 20231219, end: 20231219
  3. POLATUZUMAB VEDOTIN [Suspect]
     Active Substance: POLATUZUMAB VEDOTIN
     Route: 042
  4. RITUXIMAB [Suspect]
     Active Substance: RITUXIMAB
     Indication: Diffuse large B-cell lymphoma
     Route: 065
  5. PREDNISONE ACETATE [Suspect]
     Active Substance: PREDNISONE ACETATE
     Indication: Diffuse large B-cell lymphoma
     Route: 065
  6. EPIRUBICIN HYDROCHLORIDE [Suspect]
     Active Substance: EPIRUBICIN HYDROCHLORIDE
     Indication: Diffuse large B-cell lymphoma
     Route: 065
  7. CYCLOPHOSPHAMIDE [Suspect]
     Active Substance: CYCLOPHOSPHAMIDE
     Indication: Diffuse large B-cell lymphoma
     Route: 065
  8. IFOSFAMIDE [Suspect]
     Active Substance: IFOSFAMIDE
     Indication: Diffuse large B-cell lymphoma
     Route: 042
     Dates: start: 20231121, end: 20231121
  9. IFOSFAMIDE [Suspect]
     Active Substance: IFOSFAMIDE
     Route: 042
     Dates: start: 20231123, end: 20231123
  10. IFOSFAMIDE [Suspect]
     Active Substance: IFOSFAMIDE
     Route: 042
     Dates: start: 20231120, end: 20231120
  11. IFOSFAMIDE [Suspect]
     Active Substance: IFOSFAMIDE
     Route: 042
     Dates: start: 20231220, end: 20231221
  12. IFOSFAMIDE [Suspect]
     Active Substance: IFOSFAMIDE
     Route: 042
     Dates: start: 20231222, end: 20231222
  13. CARBOPLATIN [Suspect]
     Active Substance: CARBOPLATIN
     Indication: Diffuse large B-cell lymphoma
     Route: 042
     Dates: start: 20231124, end: 20231124
  14. CARBOPLATIN [Suspect]
     Active Substance: CARBOPLATIN
     Route: 042
     Dates: start: 20231120, end: 20231120
  15. CARBOPLATIN [Suspect]
     Active Substance: CARBOPLATIN
     Route: 042
     Dates: start: 20231220, end: 20231221
  16. ETOPOSIDE [Suspect]
     Active Substance: ETOPOSIDE
     Indication: Diffuse large B-cell lymphoma
     Route: 042
     Dates: start: 20231123, end: 20231123
  17. ETOPOSIDE [Suspect]
     Active Substance: ETOPOSIDE
     Route: 042
     Dates: start: 20231120, end: 20231120
  18. ETOPOSIDE [Suspect]
     Active Substance: ETOPOSIDE
     Route: 042
     Dates: start: 20231220, end: 20231222
  19. ESOMEPRAZOLE SODIUM [Concomitant]
     Active Substance: ESOMEPRAZOLE SODIUM
     Route: 042
     Dates: start: 20231115, end: 20231119
  20. ESOMEPRAZOLE SODIUM [Concomitant]
     Active Substance: ESOMEPRAZOLE SODIUM
     Route: 042
     Dates: start: 20231201, end: 20231206
  21. ESOMEPRAZOLE SODIUM [Concomitant]
     Active Substance: ESOMEPRAZOLE SODIUM
     Route: 042
     Dates: start: 20231206, end: 20231207
  22. ESOMEPRAZOLE SODIUM [Concomitant]
     Active Substance: ESOMEPRAZOLE SODIUM
     Route: 042
     Dates: start: 20231207, end: 20231208
  23. PIPERACILLIN AND TAZOBACTAM [Concomitant]
     Active Substance: PIPERACILLIN SODIUM\TAZOBACTAM SODIUM
     Route: 042
     Dates: start: 20231115, end: 20231117
  24. ALBUMIN HUMAN [Concomitant]
     Active Substance: ALBUMIN HUMAN
     Route: 042
     Dates: start: 20231116, end: 20231129
  25. ALBUMIN HUMAN [Concomitant]
     Active Substance: ALBUMIN HUMAN
     Route: 042
     Dates: start: 20231115, end: 20231115
  26. LINEZOLID [Concomitant]
     Active Substance: LINEZOLID
     Route: 042
     Dates: start: 20231116, end: 20231205
  27. ETIMICIN SULFATE [Concomitant]
     Active Substance: ETIMICIN SULFATE
     Route: 042
     Dates: start: 20231116, end: 20231129
  28. Micafungin Sqdium [Concomitant]
     Route: 042
     Dates: start: 20231117, end: 20231208
  29. POTASSIUM CITRATE [Concomitant]
     Active Substance: POTASSIUM CITRATE
     Route: 048
     Dates: start: 20231117, end: 20231201
  30. CEFEPIME HYDROCHLORIDE [Concomitant]
     Active Substance: CEFEPIME HYDROCHLORIDE
     Route: 042
     Dates: start: 20231117, end: 20231124
  31. INSULIN HUMAN [Concomitant]
     Active Substance: INSULIN HUMAN
     Route: 042
     Dates: start: 20231118, end: 20231119
  32. SODIUM BICARBONATE [Concomitant]
     Active Substance: SODIUM BICARBONATE
     Route: 042
     Dates: start: 20231118, end: 20231129
  33. MESNA [Concomitant]
     Active Substance: MESNA
     Route: 042
     Dates: start: 20231120, end: 20231122
  34. TROPISETRON HYDROCHLORIDE [Concomitant]
     Active Substance: TROPISETRON HYDROCHLORIDE
     Route: 042
     Dates: start: 20231120, end: 20231121
  35. ADEMETIONINE BUTANEDISULFONATE [Concomitant]
     Active Substance: ADEMETIONINE BUTANEDISULFONATE
     Route: 042
     Dates: start: 20231120, end: 20231202
  36. GLUTATHIONE [Concomitant]
     Active Substance: GLUTATHIONE
     Route: 042
     Dates: start: 20231120, end: 20231208
  37. MAGNESIUM ISOGLYCYRRHIZINATE [Concomitant]
     Active Substance: MAGNESIUM ISOGLYCYRRHIZINATE
     Route: 042
     Dates: start: 20231121, end: 20231129
  38. URSODIOL [Concomitant]
     Active Substance: URSODIOL
     Route: 048
     Dates: start: 20231121, end: 20231129
  39. ETHAMSYLATE [Concomitant]
     Active Substance: ETHAMSYLATE
     Route: 042
     Dates: start: 20231201, end: 20231204
  40. OCTREOTIDE ACETATE [Concomitant]
     Active Substance: OCTREOTIDE ACETATE
     Dates: start: 20231201, end: 20231204
  41. REBAMIPIDE [Concomitant]
     Active Substance: REBAMIPIDE
     Route: 048
     Dates: start: 20231201, end: 20231210
  42. MEROPENEM [Concomitant]
     Active Substance: MEROPENEM
     Route: 042
     Dates: start: 20231202, end: 20231208
  43. ESOMEPRAZOLE MAGNESIUM [Concomitant]
     Active Substance: ESOMEPRAZOLE MAGNESIUM
     Route: 048
     Dates: start: 20231209, end: 20231210
  44. IBUPROFEN [Concomitant]
     Active Substance: IBUPROFEN
     Route: 042
     Dates: start: 20231115, end: 20231116
  45. LIDOCAINE HYDROCHLORIDE [Concomitant]
     Active Substance: LIDOCAINE HYDROCHLORIDE
     Indication: Anaesthesia
     Route: 058
     Dates: start: 20231116, end: 20231116
  46. POTASSIUM CHLORIDE [Concomitant]
     Active Substance: POTASSIUM CHLORIDE
     Route: 042
     Dates: start: 20231116, end: 20231120
  47. PROMETHAZINE HYDROCHLORIDE [Concomitant]
     Active Substance: PROMETHAZINE HYDROCHLORIDE
     Route: 030
     Dates: start: 20231116, end: 20231116
  48. SODIUM CHLORIDE [Concomitant]
     Active Substance: SODIUM CHLORIDE
     Route: 042
     Dates: start: 20231117, end: 20231117
  49. TORSEMIDE [Concomitant]
     Active Substance: TORSEMIDE
     Route: 042
     Dates: start: 20231120, end: 20231121
  50. DEXAMETHASONE SODIUM PHOSPHATE [Concomitant]
     Active Substance: DEXAMETHASONE SODIUM PHOSPHATE
     Route: 042
     Dates: start: 20231122, end: 20231123
  51. ONDANSETRON HYDROCHLORIDE [Concomitant]
     Active Substance: ONDANSETRON HYDROCHLORIDE
     Route: 042
     Dates: start: 20231124, end: 20231124
  52. KANG FU XIN [Concomitant]
  53. CALCIUM GLUCONATE [Concomitant]
     Active Substance: CALCIUM GLUCONATE
  54. CEFOPERAZONE SODIUM\SULBACTAM SODIUM [Concomitant]
     Active Substance: CEFOPERAZONE SODIUM\SULBACTAM SODIUM
  55. DIPHENHYDRAMINE HYDROCHLORIDE [Concomitant]
     Active Substance: DIPHENHYDRAMINE HYDROCHLORIDE
  56. GRANULOCYTE COLONY-STIMULATING FACTOR NOS [Concomitant]
     Active Substance: GRANULOCYTE COLONY-STIMULATING FACTOR NOS
  57. CARBAZOCHROME SODIUM SULFONATE [Concomitant]
     Active Substance: CARBAZOCHROME SODIUM SULFONATE
  58. BATROXOBIN [Concomitant]
     Active Substance: BATROXOBIN
  59. DIISOPROPYLAMINE DICHLOROACETATE AND SODIUM GLUCONATE [Concomitant]
  60. HYDROTALCITE [Concomitant]
     Active Substance: HYDROTALCITE
  61. POLAPREZINC [Concomitant]
     Active Substance: POLAPREZINC
  62. MAGNESIUM ASPARTATE\POTASSIUM ASPARTATE [Concomitant]
     Active Substance: MAGNESIUM ASPARTATE\POTASSIUM ASPARTATE
  63. FERRIC POLYSACCHARIDE COMPLEX [Concomitant]
     Active Substance: FERRIC POLYSACCHARIDE COMPLEX
  64. METHYLCOBALAMIN [Concomitant]
     Active Substance: METHYLCOBALAMIN
  65. FOLIC ACID [Concomitant]
     Active Substance: FOLIC ACID
  66. ACETYLCYSTEINE [Concomitant]
     Active Substance: ACETYLCYSTEINE
  67. PEGYLATED RECOMBINANT HUMAN GRANULOCYTE COLONY STIMULATING FACTOR [Concomitant]
  68. RECOMBINANT HUMAN THROMBOPOIETIN [Concomitant]
     Active Substance: RECOMBINANT HUMAN THROMBOPOIETIN

REACTIONS (12)
  - Pyrexia [Recovered/Resolved]
  - Platelet count decreased [Not Recovered/Not Resolved]
  - White blood cell count decreased [Recovered/Resolved]
  - Gastrointestinal haemorrhage [Not Recovered/Not Resolved]
  - Neutrophil count decreased [Recovered/Resolved]
  - Hyperglycaemia [Not Recovered/Not Resolved]
  - Urinary tract infection [Recovered/Resolved]
  - Hypoalbuminaemia [Not Recovered/Not Resolved]
  - Procalcitonin increased [Recovered/Resolved]
  - Stool analysis abnormal [Not Recovered/Not Resolved]
  - Platelet count decreased [Recovered/Resolved]
  - Electrocardiogram T wave inversion [Recovered/Resolved]

NARRATIVE: CASE EVENT DATE: 20231124
